FAERS Safety Report 10337889 (Version 1)
Quarter: 2014Q3

REPORT INFORMATION
  Report Type: Spontaneous
  Country: TR (occurrence: None)
  Receive Date: 20140722
  Receipt Date: 20140722
  Transmission Date: 20150326
  Serious: Yes (Death, Hospitalization)
  Sender: FDA-Public Use
  Company Number: 2014JUB00048

PATIENT
  Age: 55 Year
  Sex: Female

DRUGS (2)
  1. OXCARBAZEPINE (OXCARBAZEPINE) UNKNOWN [Suspect]
     Active Substance: OXCARBAZEPINE
     Indication: EPILEPSY
  2. ARTIFICIAL TEARS [Concomitant]
     Active Substance: GLYCERIN\HYPROMELLOSES\POLYETHYLENE GLYCOL 400

REACTIONS (4)
  - Septic shock [None]
  - Histiocytosis haematophagic [None]
  - Vanishing bile duct syndrome [None]
  - Hepatitis toxic [None]
